FAERS Safety Report 16839802 (Version 3)
Quarter: 2019Q3

REPORT INFORMATION
  Report Type: Spontaneous
  Country: UA (occurrence: UA)
  Receive Date: 20190923
  Receipt Date: 20190930
  Transmission Date: 20191005
  Serious: Yes (Hospitalization, Other)
  Sender: FDA-Public Use
  Company Number: UA-ASTRAZENECA-2019SF33511

PATIENT
  Age: 49 Year
  Sex: Male

DRUGS (4)
  1. ACARD [Concomitant]
     Active Substance: ASPIRIN
  2. ACARD [Concomitant]
     Active Substance: ASPIRIN
     Dosage: DECREASED- 75 MG
  3. ROSUVASTATIN. [Concomitant]
     Active Substance: ROSUVASTATIN
     Dosage: 20.0MG UNKNOWN
  4. BRILINTA [Suspect]
     Active Substance: TICAGRELOR
     Indication: ACUTE MYOCARDIAL INFARCTION
     Dosage: 90.0MG UNKNOWN
     Route: 048
     Dates: start: 20190705

REACTIONS (4)
  - Asthenia [Recovered/Resolved]
  - Contusion [Recovered/Resolved]
  - Cardiac discomfort [Recovered/Resolved]
  - Dyspnoea exertional [Recovered/Resolved]
